FAERS Safety Report 11533236 (Version 2)
Quarter: 2015Q3

REPORT INFORMATION
  Report Type: Spontaneous
  Country: BR (occurrence: BR)
  Receive Date: 20150921
  Receipt Date: 20150922
  Transmission Date: 20151125
  Serious: Yes (Other)
  Sender: FDA-Public Use
  Company Number: PHHY2015BR110928

PATIENT
  Sex: Female

DRUGS (3)
  1. SINVASTACOR [Suspect]
     Active Substance: SIMVASTATIN
     Indication: DIABETES MELLITUS
     Route: 065
  2. SINVASTACOR [Suspect]
     Active Substance: SIMVASTATIN
     Indication: BLOOD CHOLESTEROL
  3. SINVASTACOR [Suspect]
     Active Substance: SIMVASTATIN
     Indication: BLOOD PRESSURE MEASUREMENT

REACTIONS (1)
  - Amputation [Unknown]
